FAERS Safety Report 15598479 (Version 2)
Quarter: 2019Q2

REPORT INFORMATION
  Report Type: Spontaneous
  Country: US (occurrence: US)
  Receive Date: 20181108
  Receipt Date: 20190527
  Transmission Date: 20190711
  Serious: No
  Sender: FDA-Public Use
  Company Number: US-SA-2018SA305557

PATIENT
  Age: 51 Year
  Sex: Female

DRUGS (1)
  1. DUPIXENT [Suspect]
     Active Substance: DUPILUMAB
     Dosage: UNK
     Route: 058
     Dates: start: 201808

REACTIONS (4)
  - Headache [Unknown]
  - Fatigue [Unknown]
  - Eye pruritus [Unknown]
  - Influenza [Unknown]

NARRATIVE: CASE EVENT DATE: 20180910
